FAERS Safety Report 8515009-6 (Version None)
Quarter: 2012Q3

REPORT INFORMATION
  Report Type: 
  Country: None (occurrence: None)
  Receive Date: 20120717
  Receipt Date: 20120711
  Transmission Date: 20120928
  Serious: Yes (Life-Threatening)
  Sender: FDA-Public Use
  Company Number: JP-ASTRAZENECA-2012SE47614

PATIENT

DRUGS (3)
  1. DIPRIVAN [Suspect]
     Route: 042
  2. ROCURONIUM BROMIDE [Concomitant]
     Dosage: DOSE UNKNOWN
     Route: 065
  3. ULTIVA [Concomitant]
     Dosage: DOSE UNKNOWN
     Route: 065

REACTIONS (1)
  - ANAPHYLACTIC SHOCK [None]
